FAERS Safety Report 12170787 (Version 1)
Quarter: 2016Q1

REPORT INFORMATION
  Report Type: Spontaneous
  Country: RS (occurrence: RS)
  Receive Date: 20160311
  Receipt Date: 20160311
  Transmission Date: 20160526
  Serious: Yes (Life-Threatening, Other)
  Sender: FDA-Public Use
  Company Number: RS-TEVA-641497ISR

PATIENT
  Age: 62 Year
  Sex: Female
  Weight: 89 kg

DRUGS (3)
  1. RANITIDIN [Concomitant]
     Active Substance: RANITIDINE HYDROCHLORIDE
     Indication: PREMEDICATION
     Route: 042
     Dates: start: 20160218, end: 20160218
  2. OXALIPLATIN-PLIVA [Suspect]
     Active Substance: OXALIPLATIN
     Indication: COLORECTAL CANCER
     Route: 042
     Dates: start: 20160218, end: 20160218
  3. DEXASON [Concomitant]
     Indication: PREMEDICATION
     Route: 042
     Dates: start: 20160218, end: 20160218

REACTIONS (4)
  - Urticaria [Recovered/Resolved]
  - Dyspnoea [Recovered/Resolved]
  - Hyperhidrosis [Recovered/Resolved]
  - Peristalsis visible [Recovered/Resolved]

NARRATIVE: CASE EVENT DATE: 20160218
